FAERS Safety Report 9996739 (Version 1)
Quarter: 2014Q1

REPORT INFORMATION
  Report Type: Spontaneous
  Country: US (occurrence: US)
  Receive Date: 20140311
  Receipt Date: 20140311
  Transmission Date: 20141002
  Serious: No
  Sender: FDA-Public Use
  Company Number: US-GLAXOSMITHKLINE-A1020141A

PATIENT
  Age: 54 Year
  Sex: Male

DRUGS (1)
  1. NICORETTE FRUIT CHILL OTC 4MG [Suspect]
     Indication: EX-TOBACCO USER

REACTIONS (4)
  - Hyperchlorhydria [Unknown]
  - Retching [Unknown]
  - Cough [Unknown]
  - Gastrooesophageal reflux disease [Unknown]
